FAERS Safety Report 17700804 (Version 1)
Quarter: 2020Q2

REPORT INFORMATION
  Report Type: Spontaneous
  Country: GB (occurrence: GB)
  Receive Date: 20200423
  Receipt Date: 20200423
  Transmission Date: 20200714
  Serious: Yes (Other)
  Sender: FDA-Public Use
  Company Number: GB-BAUSCH-BL-2020-011071

PATIENT
  Age: 8 Year
  Sex: Male
  Weight: 17 kg

DRUGS (14)
  1. CISPLATIN. [Suspect]
     Active Substance: CISPLATIN
     Indication: NEUROBLASTOMA
     Dosage: ON DAYS 0-3; ONE CYCLE
     Route: 065
  2. CYCLOPHOSPHAMIDE. [Suspect]
     Active Substance: CYCLOPHOSPHAMIDE
     Indication: METASTASES TO BONE
  3. ACICLOVIR [Suspect]
     Active Substance: ACYCLOVIR
     Indication: VARICELLA ZOSTER VIRUS INFECTION
     Route: 042
     Dates: start: 2017, end: 2017
  4. CISPLATIN. [Suspect]
     Active Substance: CISPLATIN
     Indication: METASTASES TO BONE
     Dosage: FIFTH CYCLE
     Route: 065
  5. DOXORUBICIN [Suspect]
     Active Substance: DOXORUBICIN
     Indication: NEUROBLASTOMA
     Dosage: 3 CYCLES
     Route: 065
  6. ACICLOVIR [Suspect]
     Active Substance: ACYCLOVIR
     Dosage: STARTED AGAIN DURING THE 5TH CYCLE OF CHEMOTHERAPY
     Route: 042
     Dates: start: 2017
  7. FOSCARNET [Suspect]
     Active Substance: FOSCARNET
     Indication: VARICELLA ZOSTER VIRUS INFECTION
     Route: 065
     Dates: start: 2017, end: 2017
  8. CIDOFOVIR. [Suspect]
     Active Substance: CIDOFOVIR
     Indication: VARICELLA ZOSTER VIRUS INFECTION
     Route: 065
  9. DOXORUBICIN [Suspect]
     Active Substance: DOXORUBICIN
     Indication: METASTASES TO BONE
  10. VINCRISTINE [Suspect]
     Active Substance: VINCRISTINE
     Indication: NEUROBLASTOMA
     Dosage: 3 CYCLES
     Route: 065
  11. VINCRISTINE [Suspect]
     Active Substance: VINCRISTINE
     Indication: METASTASES TO BONE
  12. ETOPOSIDE. [Suspect]
     Active Substance: ETOPOSIDE
     Indication: NEUROBLASTOMA
     Dosage: ON DAYS 0-2; ONE CYCLE
     Route: 065
  13. CYCLOPHOSPHAMIDE. [Suspect]
     Active Substance: CYCLOPHOSPHAMIDE
     Indication: NEUROBLASTOMA
     Dosage: ON DAY 0 AND DAY 1; 3 CYCLES
     Route: 065
  14. ETOPOSIDE. [Suspect]
     Active Substance: ETOPOSIDE
     Indication: METASTASES TO BONE
     Dosage: FIFTH CYCLE
     Route: 065
     Dates: start: 2017

REACTIONS (3)
  - Toxicity to various agents [Unknown]
  - Drug resistance [Unknown]
  - Renal impairment [Unknown]

NARRATIVE: CASE EVENT DATE: 2017
